FAERS Safety Report 15271912 (Version 1)
Quarter: 2018Q3

REPORT INFORMATION
  Report Type: Spontaneous
  Country: DE (occurrence: DE)
  Receive Date: 20180813
  Receipt Date: 20180813
  Transmission Date: 20181010
  Serious: Yes (Hospitalization)
  Sender: FDA-Public Use
  Company Number: PHHY2018DE069405

PATIENT
  Age: 64 Year
  Sex: Male
  Weight: 108 kg

DRUGS (7)
  1. DEXAMETHASONE. [Suspect]
     Active Substance: DEXAMETHASONE
     Dosage: 16 MG, UNK (DOSAGE FORM: UNSPECIFIED)
     Route: 065
  2. DEXAMETHASONE. [Suspect]
     Active Substance: DEXAMETHASONE
     Indication: PLASMA CELL MYELOMA
     Dosage: 40 MG, UNK (DOSAGE FORM: UNSPECIFIED)
     Route: 065
  3. CYCLOPHOSPHAMIDE. [Suspect]
     Active Substance: CYCLOPHOSPHAMIDE
     Dosage: 2061 MG, UNK (DOSAGE FORM: UNSPECIFIED)
     Route: 065
  4. DEXAMETHASONE. [Suspect]
     Active Substance: DEXAMETHASONE
     Dosage: 20 MG, UNK (DOSAGE FORM: UNSPECIFIED)
     Route: 065
  5. CYCLOPHOSPHAMIDE. [Suspect]
     Active Substance: CYCLOPHOSPHAMIDE
     Indication: PLASMA CELL MYELOMA
     Dosage: 1030.5 MG, UNK (DOSAGE FORM: UNSPECIFIED)
     Route: 065
  6. CYCLOPHOSPHAMIDE. [Suspect]
     Active Substance: CYCLOPHOSPHAMIDE
     Dosage: 972 MG, UNK (DOSAGE FORM: UNSPECIFIED)
     Route: 065
  7. VELCADE [Suspect]
     Active Substance: BORTEZOMIB
     Indication: PLASMA CELL MYELOMA
     Dosage: 2.98 MG, UNK (DOSAGE FORM: LYOPHILIZED POWDER)
     Route: 065

REACTIONS (5)
  - Febrile bone marrow aplasia [Recovered/Resolved]
  - Organising pneumonia [Recovered/Resolved]
  - Dysphagia [Recovered/Resolved]
  - Oral candidiasis [Recovered/Resolved]
  - Oesophagitis [Recovered/Resolved]

NARRATIVE: CASE EVENT DATE: 20180219
